FAERS Safety Report 9141970 (Version 1)
Quarter: 2013Q1

REPORT INFORMATION
  Report Type: Spontaneous
  Country: US (occurrence: US)
  Receive Date: 20130305
  Receipt Date: 20130305
  Transmission Date: 20140127
  Serious: No
  Sender: FDA-Public Use
  Company Number: US-AMGEN-USASP2013011653

PATIENT
  Age: 53 Year
  Sex: Female

DRUGS (1)
  1. ENBREL [Suspect]
     Indication: ANKYLOSING SPONDYLITIS
     Dosage: 50 MG, ONCE WEEKLY
     Dates: start: 20120904

REACTIONS (5)
  - Headache [Recovered/Resolved]
  - Sinus headache [Recovered/Resolved]
  - Fatigue [Recovered/Resolved]
  - Musculoskeletal pain [Not Recovered/Not Resolved]
  - Weight increased [Not Recovered/Not Resolved]
